FAERS Safety Report 8348886-2 (Version None)
Quarter: 2012Q2

REPORT INFORMATION
  Report Type: 
  Country: None (occurrence: None)
  Receive Date: 20120508
  Receipt Date: 20120502
  Transmission Date: 20120825
  Serious: Yes (Death)
  Sender: FDA-Public Use
  Company Number: 2012SP022887

PATIENT
  Age: 54 Year
  Sex: Female

DRUGS (3)
  1. ZOLOFT [Concomitant]
  2. PEG-INTRON [Suspect]
     Indication: HEPATITIS C
     Dosage: 80 MCG;QW;SC
     Route: 058
     Dates: start: 20120330
  3. RIBAVIRIN [Suspect]
     Indication: HEPATITIS C
     Dates: start: 20120330

REACTIONS (1)
  - HEPATIC FAILURE [None]
